FAERS Safety Report 21836372 (Version 1)
Quarter: 2023Q1

REPORT INFORMATION
  Report Type: Spontaneous
  Country: US (occurrence: US)
  Receive Date: 20230109
  Receipt Date: 20230109
  Transmission Date: 20230418
  Serious: No
  Sender: FDA-Public Use
  Company Number: US-TERSERA THERAPEUTICS LLC-2022TRS002545

PATIENT

DRUGS (1)
  1. PRIALT [Suspect]
     Active Substance: ZICONOTIDE ACETATE
     Indication: Spinal pain
     Dosage: UNK
     Route: 037

REACTIONS (2)
  - Pain [Not Recovered/Not Resolved]
  - Electric shock sensation [Not Recovered/Not Resolved]

NARRATIVE: CASE EVENT DATE: 20220615
